FAERS Safety Report 7818783-7 (Version None)
Quarter: 2011Q4

REPORT INFORMATION
  Report Type: 
  Country: None (occurrence: None)
  Receive Date: 20111018
  Receipt Date: 20111010
  Transmission Date: 20120403
  Serious: No
  Sender: FDA-Public Use
  Company Number: US-BIOGENIDEC-2011BI038673

PATIENT
  Sex: Female

DRUGS (4)
  1. TYSABRI [Suspect]
     Indication: MULTIPLE SCLEROSIS
     Route: 042
     Dates: start: 20110428, end: 20110919
  2. TYSABRI [Suspect]
     Route: 042
     Dates: start: 20080523, end: 20090410
  3. TYSABRI [Suspect]
     Route: 042
     Dates: start: 20071002, end: 20071031
  4. AVONEX [Concomitant]
     Indication: MULTIPLE SCLEROSIS
     Route: 030

REACTIONS (1)
  - DRUG SPECIFIC ANTIBODY PRESENT [None]
